FAERS Safety Report 11988510 (Version 1)
Quarter: 2016Q1

REPORT INFORMATION
  Report Type: Spontaneous
  Country: GB (occurrence: GB)
  Receive Date: 20160202
  Receipt Date: 20160202
  Transmission Date: 20160526
  Serious: Yes (Other)
  Sender: FDA-Public Use
  Company Number: GB-TEVA-631532ISR

PATIENT
  Age: 4 Week
  Sex: Female
  Weight: 3.3 kg

DRUGS (2)
  1. PROPRANOLOL HYDROCHLORIDE. [Suspect]
     Active Substance: PROPRANOLOL HYDROCHLORIDE
     Indication: HAEMANGIOMA
     Dosage: 2 MG KG1 DAY1, INGESTIONS
     Route: 048
  2. PROPRANOLOL HYDROCHLORIDE. [Suspect]
     Active Substance: PROPRANOLOL HYDROCHLORIDE
     Indication: HAEMANGIOMA
     Dosage: 0.5 MG KG1 DAY1, INGESTIONS
     Route: 048

REACTIONS (2)
  - Gastrooesophageal reflux disease [Unknown]
  - Raynaud^s phenomenon [Unknown]
